FAERS Safety Report 21532380 (Version 3)
Quarter: 2024Q1

REPORT INFORMATION
  Report Type: Report from Study
  Country: US (occurrence: US)
  Receive Date: 20221101
  Receipt Date: 20240109
  Transmission Date: 20240410
  Serious: Yes (Death, Hospitalization, Other)
  Sender: FDA-Public Use
  Company Number: US-ABBVIE-4142034

PATIENT
  Age: 61 Year
  Sex: Male
  Weight: 63 kg

DRUGS (19)
  1. VENCLEXTA [Suspect]
     Active Substance: VENETOCLAX
     Indication: Myelodysplastic syndrome
     Dosage: TAKE 1 TABLET BY MOUTH DAILY WITH A MEAL AND WATER. SWALLOW WHOLE DO NOT CRUSH, CHEW OR BREAK?FOR...
     Route: 048
     Dates: start: 201910, end: 202208
  2. CYCLOBENZAPRINE [Concomitant]
     Active Substance: CYCLOBENZAPRINE
     Indication: Product used for unknown indication
     Dosage: TAKE 0.5-1 TABLETS (5 TO 10MG) BY MOUTH NIGHTLY FOR 10 DAYS
     Route: 048
  3. METOPROLOL TARTRATE [Concomitant]
     Active Substance: METOPROLOL TARTRATE
     Indication: Product used for unknown indication
     Dosage: FORM STRENGTH 25 MILLIGRAM
     Route: 048
  4. DOCUSATE SODIUM AND SENNA [Concomitant]
     Active Substance: DOCUSATE SODIUM\SENNOSIDES
     Indication: Product used for unknown indication
     Dosage: 8.6-50MG TABLET?FREQUENCY TAKE 1 TABLET BY MOUTH 2 TIMES A DAY
     Route: 048
  5. LEVOFLOXACIN [Concomitant]
     Active Substance: LEVOFLOXACIN
     Indication: Product used for unknown indication
     Dosage: FORM STRENGTH 500 MILLIGRAM
     Route: 048
  6. ACYCLOVIR [Concomitant]
     Active Substance: ACYCLOVIR
     Indication: Product used for unknown indication
     Route: 048
  7. NALOXONE [Concomitant]
     Active Substance: NALOXONE
     Indication: Product used for unknown indication
     Dosage: ADMINISTER 4MG INTO AFFECTED NOSTRIL AS NEEDED FOR OPIOID REVERSAL 1 SPRAY INTO 1 NOSTRIL MAY REP...
     Route: 045
  8. PREGABALIN [Concomitant]
     Active Substance: PREGABALIN
     Indication: Product used for unknown indication
  9. PREGABALIN [Concomitant]
     Active Substance: PREGABALIN
     Indication: Product used for unknown indication
     Route: 048
  10. MORPHINE [Concomitant]
     Active Substance: MORPHINE
     Indication: Product used for unknown indication
     Dosage: FORM STRENGTH 15 MILLIGRAM?FREQUENCY 2 IN 1 DAYS MAX DAILY AMOUNT-30MG
     Route: 048
  11. LISINOPRIL [Concomitant]
     Active Substance: LISINOPRIL
     Indication: Blood pressure measurement
     Dosage: FORM STRENGTH 5 MILLIGRAM
     Route: 048
  12. ACETAMINOPHEN\HYDROCODONE [Concomitant]
     Active Substance: ACETAMINOPHEN\HYDROCODONE
     Indication: Pain
     Dosage: 5-325MG TABLET?2 TAB EVERY 8 HOURS DAILY AMT-6 TAB.
     Route: 048
  13. ATORVASTATIN CALCIUM [Concomitant]
     Active Substance: ATORVASTATIN CALCIUM
     Indication: Product used for unknown indication
     Route: 048
  14. FLUCONAZOLE [Concomitant]
     Active Substance: FLUCONAZOLE
     Indication: Product used for unknown indication
     Dosage: FORM STRENGTH 200 MILLIGRAM, FREQUENCY DAILY
     Route: 048
  15. OMEPRAZOLE [Concomitant]
     Active Substance: OMEPRAZOLE
     Indication: Product used for unknown indication
     Dosage: 20MG CAPSULE DR/EC
     Route: 048
  16. INSULIN DETEMIR [Concomitant]
     Active Substance: INSULIN DETEMIR
     Indication: Product used for unknown indication
     Dosage: 100UNIT/ML INSULIN PEN?INJECT 10 UNITS UNDER SKIN WITH MEALS PLUS CORRECTION AS NEEDED UP TO 60 U...
     Route: 058
  17. INSULIN ASPART [Concomitant]
     Active Substance: INSULIN ASPART
     Indication: Product used for unknown indication
     Dosage: 100MG/ML INSULIN PEN?AMOUNT TAKEN BASED ON PRE MEAL BLOOD SUGAR. THIS WILL BE ADDITION TO THE 20 ...
  18. DECITABINE [Concomitant]
     Active Substance: DECITABINE
     Indication: Product used for unknown indication
  19. METAMUCIL [Concomitant]
     Active Substance: PLANTAGO SEED
     Indication: Product used for unknown indication
     Dosage: 3.4 GM POWDER?FREQUENCY 1 PACKET BY MOUTH 2 TIMES A DAY
     Route: 048

REACTIONS (7)
  - Death [Fatal]
  - COVID-19 [Unknown]
  - Off label use [Unknown]
  - Febrile neutropenia [Unknown]
  - Gastrointestinal haemorrhage [Unknown]
  - Unevaluable event [Unknown]
  - Bacteraemia [Unknown]

NARRATIVE: CASE EVENT DATE: 20220801
